FAERS Safety Report 6735233-2 (Version None)
Quarter: 2010Q2

REPORT INFORMATION
  Report Type: 
  Country: None (occurrence: None)
  Receive Date: 20100519
  Receipt Date: 20100519
  Transmission Date: 20101027
  Serious: No
  Sender: FDA-Public Use
  Company Number: None

PATIENT
  Age: 29 Year
  Sex: Female
  Weight: 114.3065 kg

DRUGS (1)
  1. PRISTIQ [Suspect]
     Dosage: 50 MG
     Dates: start: 20080701, end: 20091201

REACTIONS (7)
  - ANGER [None]
  - ANORGASMIA [None]
  - CRYING [None]
  - EMOTIONAL DISORDER [None]
  - FEELING ABNORMAL [None]
  - INSOMNIA [None]
  - LOSS OF LIBIDO [None]
